FAERS Safety Report 6590943-5 (Version None)
Quarter: 2010Q1

REPORT INFORMATION
  Report Type: 
  Country: None (occurrence: None)
  Receive Date: 20100219
  Receipt Date: 20100210
  Transmission Date: 20100710
  Serious: Yes (Hospitalization)
  Sender: FDA-Public Use
  Company Number: GB-JNJFOC-20100205751

PATIENT
  Age: 81 Year
  Sex: Female

DRUGS (4)
  1. REMICADE [Suspect]
     Indication: RHEUMATOID ARTHRITIS
     Route: 042
  2. METHOTREXATE [Concomitant]
     Indication: RHEUMATOID ARTHRITIS
  3. OMEPRAZOLE [Concomitant]
  4. FERROUS SULFATE TAB [Concomitant]

REACTIONS (5)
  - ANAEMIA [None]
  - GASTRITIS EROSIVE [None]
  - MEMORY IMPAIRMENT [None]
  - RHEUMATOID ARTHRITIS [None]
  - URINARY TRACT INFECTION [None]
